FAERS Safety Report 8811429 (Version 1)
Quarter: 2012Q4

REPORT INFORMATION
  Report Type: Spontaneous
  Country: US (occurrence: None)
  Receive Date: 20120925
  Receipt Date: 20120925
  Transmission Date: 20130627
  Serious: Yes (Other)
  Sender: FDA-Public Use
  Company Number: None

PATIENT
  Age: 44 Year
  Sex: Female
  Weight: 66.23 kg

DRUGS (1)
  1. NUCYNTA [Suspect]
     Indication: POST PROCEDURAL PAIN
     Dosage: 150 mg Twice a Day po
     Route: 048

REACTIONS (27)
  - Psychotic disorder [None]
  - Mental disorder [None]
  - Hallucination [None]
  - Delusion [None]
  - Staring [None]
  - Scratch [None]
  - Dermatillomania [None]
  - Skin haemorrhage [None]
  - Scab [None]
  - Anxiety [None]
  - Epistaxis [None]
  - Mental disorder [None]
  - Dysphemia [None]
  - Aphasia [None]
  - Crying [None]
  - Suicidal ideation [None]
  - Tremor [None]
  - Fear [None]
  - Brain injury [None]
  - Dyskinesia [None]
  - Drooling [None]
  - Cognitive disorder [None]
  - Expressive language disorder [None]
  - Malaise [None]
  - Nausea [None]
  - Motor dysfunction [None]
  - Feeling abnormal [None]
